FAERS Safety Report 4585868-0 (Version None)
Quarter: 2005Q1

REPORT INFORMATION
  Report Type: 
  Country: None (occurrence: None)
  Receive Date: 20050214
  Receipt Date: 20050203
  Transmission Date: 20050727
  Serious: Yes (Hospitalization)
  Sender: FDA-Public Use
  Company Number: BUS-022005-003

PATIENT
  Age: 27 Year
  Sex: Male

DRUGS (6)
  1. BUSULFEX [Suspect]
     Indication: ACUTE LEUKAEMIA
     Dosage: 208/MG/DAY (52MG/DOSE X 4 TIMES)-IV
     Route: 042
     Dates: start: 20021204, end: 20021207
  2. CYCLOPHOSPHAMIDE [Concomitant]
  3. PHENYTOIN [Concomitant]
  4. ZOFRAN [Concomitant]
  5. ANTIBIOTICS [Concomitant]
  6. IMMUNOSUPPRESSANTS [Concomitant]

REACTIONS (4)
  - AZOTAEMIA [None]
  - BONE MARROW TRANSPLANT [None]
  - HAEMODIALYSIS [None]
  - RENAL FAILURE [None]
